FAERS Safety Report 24422671 (Version 9)
Quarter: 2024Q4

REPORT INFORMATION
  Report Type: Report from Study
  Country: US (occurrence: US)
  Receive Date: 20241010
  Receipt Date: 20241225
  Transmission Date: 20250115
  Serious: Yes (Other)
  Sender: JAZZ
  Company Number: US-JAZZ PHARMACEUTICALS-2024-US-014761

PATIENT
  Age: 34 Year
  Sex: Female

DRUGS (25)
  1. XYREM [Suspect]
     Active Substance: SODIUM OXYBATE
     Indication: Narcolepsy
     Dosage: 2.25 GRAM, BID
     Dates: start: 20240906
  2. XYREM [Suspect]
     Active Substance: SODIUM OXYBATE
     Indication: Cataplexy
     Dosage: UNK
  3. XYREM [Suspect]
     Active Substance: SODIUM OXYBATE
     Indication: Somnolence
  4. JANUVIA [Suspect]
     Active Substance: SITAGLIPTIN PHOSPHATE
     Indication: Diabetes mellitus
     Dosage: UNK
     Dates: start: 20240903
  5. INSULIN NOS [Suspect]
     Active Substance: INSULIN NOS
     Indication: Blood glucose increased
     Dosage: UNK
  6. JARDIANCE [Suspect]
     Active Substance: EMPAGLIFLOZIN
     Indication: Product used for unknown indication
     Dosage: UNK
     Dates: start: 20240809
  7. JARDIANCE [Suspect]
     Active Substance: EMPAGLIFLOZIN
     Dosage: 10 MILLIGRAM, QD
     Route: 048
  8. WELLBUTRIN SR [Concomitant]
     Active Substance: BUPROPION HYDROCHLORIDE
     Indication: Product used for unknown indication
     Dosage: UNK
     Dates: start: 20240815
  9. WELLBUTRIN SR [Concomitant]
     Active Substance: BUPROPION HYDROCHLORIDE
     Dosage: 300 MILLIGRAM (1 TABLET DAILY)
     Route: 048
  10. TRESIBA [Concomitant]
     Active Substance: INSULIN DEGLUDEC
     Indication: Product used for unknown indication
     Dosage: UNK (100 UNIT/ML)
     Dates: start: 20240822
  11. LYUMJEV KWIKPEN [Concomitant]
     Active Substance: INSULIN LISPRO
     Indication: Product used for unknown indication
     Dosage: UNK
     Dates: start: 20240822
  12. LYUMJEV KWIKPEN [Concomitant]
     Active Substance: INSULIN LISPRO
     Dosage: UNK (100 UNIT/ML DEPENDING ON SUGAR LEVEL UNDERF THE SKIN)
  13. ALBUTEROL SULFATE [Concomitant]
     Active Substance: ALBUTEROL SULFATE
     Indication: Product used for unknown indication
     Dosage: UNK
     Dates: start: 20240901
  14. AZSTARYS [Concomitant]
     Active Substance: DEXMETHYLPHENIDATE HYDROCHLORIDE\SERDEXMETHYLPHENIDATE CHLORIDE
     Indication: Product used for unknown indication
     Dosage: 52.3-10.4 MILLIGRAM, CAPSULE
  15. AZSTARYS [Concomitant]
     Active Substance: DEXMETHYLPHENIDATE HYDROCHLORIDE\SERDEXMETHYLPHENIDATE CHLORIDE
     Dosage: 2 TABLETS, QD
  16. VENLAFAXINE HYDROCHLORIDE [Concomitant]
     Active Substance: VENLAFAXINE HYDROCHLORIDE
     Indication: Product used for unknown indication
     Dosage: UNK (1 CAPSULE BY MOUTH DAILY THEN INCREASE TO 2 CAAPSULE )DAILY
     Route: 048
  17. SIMBRINZA [Concomitant]
     Active Substance: BRIMONIDINE TARTRATE\BRINZOLAMIDE
     Indication: Product used for unknown indication
     Dosage: 1 DROP (IN BOTH EYES)
  18. DEXTROAMPHETAMINE [Concomitant]
     Active Substance: DEXTROAMPHETAMINE
     Indication: Product used for unknown indication
     Dosage: UNK, BID (1 TABLET)
     Route: 048
  19. RYBELSUS [Concomitant]
     Active Substance: SEMAGLUTIDE
     Indication: Product used for unknown indication
     Dosage: UNK, QD
     Route: 048
  20. PROPRANOLOL [Concomitant]
     Active Substance: PROPRANOLOL HYDROCHLORIDE
     Indication: Product used for unknown indication
     Dosage: UNK, QD
     Route: 048
  21. CLONAZEPAM [Concomitant]
     Active Substance: CLONAZEPAM
     Indication: Product used for unknown indication
     Dosage: UNK (PRN)
  22. FLUCONAZOLE [Concomitant]
     Active Substance: FLUCONAZOLE
     Indication: Product used for unknown indication
     Dosage: UNK
     Dates: start: 20241031
  23. METRONIDAZOLE [Concomitant]
     Active Substance: METRONIDAZOLE
     Indication: Product used for unknown indication
     Dosage: UNK, BID
  24. ADDERALL [Concomitant]
     Active Substance: AMPHETAMINE ASPARTATE\AMPHETAMINE SULFATE\DEXTROAMPHETAMINE SACCHARATE\DEXTROAMPHETAMINE SULFATE
     Indication: Product used for unknown indication
     Dosage: UNK
  25. FIASP [Concomitant]
     Active Substance: INSULIN ASPART
     Dosage: UNK
     Dates: start: 20241110

REACTIONS (36)
  - Paralysis [Unknown]
  - Respiratory failure [Unknown]
  - Respiratory tract infection [Recovered/Resolved]
  - Blood glucose increased [Recovering/Resolving]
  - Laryngospasm [Recovered/Resolved]
  - Constipation [Unknown]
  - Hypertension [Recovered/Resolved]
  - Fluid retention [Unknown]
  - Hunger [Unknown]
  - Eructation [Unknown]
  - Gastric bypass [Unknown]
  - Oesophageal spasm [Unknown]
  - Flatulence [Unknown]
  - Nasal congestion [Unknown]
  - Cough [Unknown]
  - Illness [Unknown]
  - Heart rate increased [Unknown]
  - Hiccups [Unknown]
  - Sinusitis [Unknown]
  - Pharyngitis [Unknown]
  - Dyspepsia [Unknown]
  - Infection [Unknown]
  - Asthenia [Unknown]
  - Abdominal distension [Unknown]
  - Myalgia [Unknown]
  - Nervousness [Unknown]
  - Hyperhidrosis [Unknown]
  - Sleep apnoea syndrome [Unknown]
  - Dizziness [Unknown]
  - Irritability [Unknown]
  - Anxiety [Unknown]
  - Drug interaction [Unknown]
  - Drug ineffective [Unknown]
  - Inappropriate schedule of product administration [Unknown]
  - Product administration interrupted [Unknown]
  - Wrong technique in product usage process [Unknown]

NARRATIVE: CASE EVENT DATE: 20241001
